FAERS Safety Report 6097482-9 (Version None)
Quarter: 2009Q1

REPORT INFORMATION
  Report Type: 
  Country: None (occurrence: None)
  Receive Date: 20090227
  Receipt Date: 20080724
  Transmission Date: 20090719
  Serious: No
  Sender: FDA-Public Use
  Company Number: A0739240A

PATIENT
  Age: 33 Year
  Sex: Female

DRUGS (3)
  1. IMITREX [Suspect]
     Indication: MIGRAINE
     Route: 058
     Dates: start: 20050101
  2. INDOCIN [Concomitant]
  3. CODEINE [Concomitant]

REACTIONS (2)
  - CHEST DISCOMFORT [None]
  - FLUSHING [None]
